FAERS Safety Report 11267378 (Version 1)
Quarter: 2015Q3

REPORT INFORMATION
  Report Type: Other
  Country: GB (occurrence: GB)
  Receive Date: 20150713
  Receipt Date: 20150713
  Transmission Date: 20151125
  Serious: Yes (Other)
  Sender: FDA-Public Use
  Company Number: GB-MYLANLABS-2015M1022070

PATIENT

DRUGS (9)
  1. AMOROLFINE [Concomitant]
     Active Substance: AMOROLFINE
     Dosage: APPLY AS DIRECTED
     Dates: start: 20150520, end: 20150610
  2. MOMETASONE [Concomitant]
     Active Substance: MOMETASONE
     Dosage: APPLY DAILY
     Dates: start: 20150618
  3. CETIRIZINE [Concomitant]
     Active Substance: CETIRIZINE HYDROCHLORIDE
     Dosage: 1 DF, QD
     Dates: start: 20141229
  4. SALBUTAMOL [Concomitant]
     Active Substance: ALBUTEROL
     Dosage: 2 DF, UNK
     Route: 055
     Dates: start: 20141229
  5. MONTELUKAST SODIUM. [Suspect]
     Active Substance: MONTELUKAST SODIUM
     Dosage: UNK
     Dates: start: 20141119
  6. FLUTICASONE [Concomitant]
     Active Substance: FLUTICASONE\FLUTICASONE PROPIONATE
     Dosage: 2 DF, BID
     Route: 055
     Dates: start: 20141229
  7. AVAMYS [Concomitant]
     Active Substance: FLUTICASONE FUROATE
     Dosage: 1 DF, QD
     Dates: start: 20141229
  8. ORLISTAT [Concomitant]
     Active Substance: ORLISTAT
     Dosage: 1 DF, TID
     Dates: start: 20150618
  9. HYDROCORTISONE. [Concomitant]
     Active Substance: HYDROCORTISONE
     Dosage: APPLY AS DIRECTED TWICE A DAY
     Dates: start: 20150520, end: 20150610

REACTIONS (1)
  - Gynaecomastia [Recovered/Resolved]

NARRATIVE: CASE EVENT DATE: 20150618
